FAERS Safety Report 13677335 (Version 1)
Quarter: 2017Q2

REPORT INFORMATION
  Report Type: Spontaneous
  Country: US (occurrence: US)
  Receive Date: 20170621
  Receipt Date: 20170621
  Transmission Date: 20170830
  Serious: Yes (Death)
  Sender: FDA-Public Use
  Company Number: None

PATIENT
  Age: 77 Year
  Sex: Male
  Weight: 82 kg

DRUGS (5)
  1. LORAZEPAM 2MG/ML [Suspect]
     Active Substance: LORAZEPAM
     Indication: AGITATION
     Dosage: ?          OTHER FREQUENCY:X 1;?
     Route: 040
     Dates: start: 20170530, end: 20170530
  2. D1/2NS+20 MEQ KCL [Concomitant]
  3. HALOPERIDOL. [Concomitant]
     Active Substance: HALOPERIDOL
  4. ACETAMINOPHEN. [Concomitant]
     Active Substance: ACETAMINOPHEN
  5. HYTRIN [Concomitant]
     Active Substance: TERAZOSIN HYDROCHLORIDE

REACTIONS (4)
  - Bradycardia [None]
  - Hypotension [None]
  - Oxygen saturation decreased [None]
  - Unresponsive to stimuli [None]

NARRATIVE: CASE EVENT DATE: 20170530
